FAERS Safety Report 8927108 (Version 1)
Quarter: 2012Q4

REPORT INFORMATION
  Report Type: 
  Country: JP (occurrence: JP)
  Receive Date: 20121127
  Receipt Date: 20121127
  Transmission Date: 20130627
  Serious: Yes (Death, Disabling)
  Sender: FDA-Public Use
  Company Number: JP-BAYER-2011-089126

PATIENT
  Age: 41 Year
  Sex: Male
  Weight: 75 kg

DRUGS (4)
  1. NEXAVAR [Suspect]
     Indication: CARCINOMA HEPATOCELLULAR
     Dosage: 400 mg, BID
     Route: 048
     Dates: start: 20110829, end: 20111128
  2. BARACLUDE [Concomitant]
     Indication: HEPATITIS B
     Dosage: Daily dose .5 mg
     Route: 048
     Dates: start: 20110802, end: 20111227
  3. LORFENAMIN [Concomitant]
     Indication: PAIN RELIEF
     Dosage: Daily dose 180 mg
     Route: 048
     Dates: start: 20110905, end: 20111220
  4. CYTOTEC [Concomitant]
     Indication: GASTRITIS PROPHYLAXIS
     Dosage: Daily dose 600 mg
     Route: 048
     Dates: start: 20110905, end: 20111220

REACTIONS (4)
  - Hepatocellular carcinoma [Fatal]
  - Haematotoxicity [Recovered/Resolved]
  - Decreased appetite [None]
  - Malaise [Not Recovered/Not Resolved]
